FAERS Safety Report 10638265 (Version 1)
Quarter: 2014Q4

REPORT INFORMATION
  Report Type: Spontaneous
  Country: AU (occurrence: None)
  Receive Date: 20141204
  Receipt Date: 20141204
  Transmission Date: 20150529
  Serious: Yes (Death, Other)
  Sender: FDA-Public Use
  Company Number: DK201405655

PATIENT
  Age: 43 Year
  Sex: Female

DRUGS (1)
  1. GANCICLOVIR. [Suspect]
     Active Substance: GANCICLOVIR
     Indication: ANTIVIRAL PROPHYLAXIS
     Dosage: 2.5 MG/KG, ON HOSPITAL DAY 2, UKNOWN

REACTIONS (4)
  - Bone marrow failure [None]
  - Condition aggravated [None]
  - Continuous haemodiafiltration [None]
  - Multi-organ failure [None]
